FAERS Safety Report 7549669-3 (Version None)
Quarter: 2011Q2

REPORT INFORMATION
  Report Type: 
  Country: None (occurrence: None)
  Receive Date: 20110615
  Receipt Date: 20100810
  Transmission Date: 20111010
  Serious: Yes (Other)
  Sender: FDA-Public Use
  Company Number: US-BRISTOL-MYERS SQUIBB COMPANY-15235674

PATIENT
  Age: 77 Year
  Sex: Female

DRUGS (6)
  1. NORVASC [Suspect]
  2. MONOPRIL [Suspect]
  3. SYNTHROID [Concomitant]
  4. KLONOPIN [Concomitant]
  5. EXFORGE [Suspect]
     Dosage: 1DF=5/160MG
  6. DURAGESIC-100 [Concomitant]
     Dosage: DUROGESIC PATCH(ALL THE TIME)

REACTIONS (3)
  - DIZZINESS [None]
  - MALAISE [None]
  - DEPRESSION [None]
